FAERS Safety Report 15881289 (Version 1)
Quarter: 2019Q1

REPORT INFORMATION
  Report Type: Spontaneous
  Country: PT (occurrence: PT)
  Receive Date: 20190128
  Receipt Date: 20190128
  Transmission Date: 20190417
  Serious: Yes (Other)
  Sender: FDA-Public Use
  Company Number: PT-MYLANLABS-2019M1007221

PATIENT
  Age: 21 Year
  Sex: Female

DRUGS (4)
  1. PYRAZINAMIDE. [Suspect]
     Active Substance: PYRAZINAMIDE
     Indication: TUBERCULOUS PLEURISY
     Dosage: UNK
  2. ISONIAZID. [Suspect]
     Active Substance: ISONIAZID
     Indication: TUBERCULOUS PLEURISY
     Dosage: UNK
     Route: 065
  3. ETHAMBUTOL [Suspect]
     Active Substance: ETHAMBUTOL HYDROCHLORIDE
     Indication: TUBERCULOUS PLEURISY
     Dosage: UNK
     Route: 065
  4. RIFAMPICIN [Suspect]
     Active Substance: RIFAMPIN
     Indication: TUBERCULOUS PLEURISY
     Dosage: UNK

REACTIONS (1)
  - Substance-induced psychotic disorder [Recovered/Resolved]
